FAERS Safety Report 7823500 (Version 7)
Quarter: 2014Q1

REPORT INFORMATION
  Report Type: Report from Study
  Country: US (occurrence: US)
  Receive Date: 20110223
  Receipt Date: 20140131
  Transmission Date: 20141002
  Serious: Yes (Other)
  Sender: FDA-Public Use
  Company Number: US-ROCHE-GNE314028

PATIENT
  Age: 50 Year
  Sex: Female
  Weight: 103.51 kg

DRUGS (25)
  1. OMALIZUMAB [Suspect]
     Indication: ASTHMA
     Route: 058
     Dates: start: 2007, end: 20110214
  2. TRACLEER [Concomitant]
     Indication: PULMONARY HYPERTENSION
     Route: 048
     Dates: start: 20070401
  3. PREVACID [Concomitant]
     Indication: GASTROOESOPHAGEAL REFLUX DISEASE
     Dosage: INDICATION; REFLUX
     Route: 048
     Dates: start: 20100212
  4. CRESTOR [Concomitant]
     Indication: HYPERCHOLESTEROLAEMIA
     Route: 048
     Dates: start: 2005
  5. MICARDIS [Concomitant]
     Indication: HYPERTENSION
     Route: 048
     Dates: start: 2008
  6. XANAX [Concomitant]
     Indication: ANXIETY
     Route: 048
     Dates: start: 2007
  7. OXYCONTIN [Concomitant]
     Indication: OSTEONECROSIS
     Dosage: PRN
     Route: 048
     Dates: start: 201112
  8. OXYCODONE [Concomitant]
     Indication: OSTEONECROSIS
     Dosage: PRN
     Route: 048
     Dates: start: 201112
  9. AMBIEN [Concomitant]
     Indication: INSOMNIA
     Dosage: FREQUENCY: QNS
     Route: 048
  10. ZANAFLEX [Concomitant]
     Indication: FIBROMYALGIA
     Dosage: 3 TABS; QNS
     Route: 048
  11. AMITRIPTYLINE [Concomitant]
     Indication: INSOMNIA
     Dosage: QNS
     Route: 048
     Dates: start: 1999
  12. LASIX [Concomitant]
     Indication: OEDEMA
     Dosage: PRN
     Route: 048
     Dates: start: 2007
  13. ESTRATEST H.S. [Concomitant]
     Dosage: INDICATION: HORMONE REPLACEMENT; DOSING:UNKNOWN; FREQUENCY: DAILY
     Route: 048
     Dates: start: 2009
  14. SINGULAIR [Concomitant]
     Indication: ASTHMA
     Dosage: FREQUENCY: QNS
     Route: 048
  15. PROAIR (UNITED STATES) [Concomitant]
     Indication: ASTHMA
     Dosage: ROUTE: INH; DOSING 2 PUFFS; PRN
     Route: 065
  16. OXYGEN [Concomitant]
     Indication: ASTHMA
     Dosage: ROUTE: INH; FREQUENCY QHS
     Route: 065
     Dates: start: 2010
  17. OXYGEN [Concomitant]
     Indication: PULMONARY HYPERTENSION
  18. PATADAY [Concomitant]
     Indication: HYPERSENSITIVITY
     Dosage: ROUTE: OP, DOSING: 2 DROPS PER EYE
     Route: 065
     Dates: start: 2009
  19. PULMICORT [Concomitant]
     Indication: ASTHMA
     Dosage: TWICE A DAY
     Route: 065
     Dates: start: 20011114
  20. LIDODERM [Concomitant]
     Indication: BACK PAIN
     Dosage: 12 HRS ON, 12 HRS OFF
     Route: 061
     Dates: start: 201110
  21. VOLTAREN GEL [Concomitant]
     Indication: PAIN
     Dosage: DOSING QID, FREQUENCY PRN
     Route: 065
     Dates: start: 2010
  22. IPRATROPIUM [Concomitant]
     Indication: ASTHMA
     Route: 045
     Dates: start: 20011001
  23. LEXAPRO [Concomitant]
     Indication: DEPRESSION
     Route: 065
     Dates: start: 2009
  24. METFORMIN HYDROCHLORIDE [Concomitant]
     Indication: HYPERGLYCAEMIA
     Dosage: 1 TABLET 2 TIMES A DAY
     Route: 048
     Dates: start: 2010, end: 20110214
  25. NASONEX [Concomitant]
     Indication: RHINITIS ALLERGIC
     Route: 048
     Dates: start: 20090915

REACTIONS (5)
  - Osteonecrosis [Unknown]
  - Dyspnoea [Recovered/Resolved]
  - Urticaria [Unknown]
  - Pruritus [Unknown]
  - Wheezing [Unknown]
